FAERS Safety Report 5498604-0 (Version None)
Quarter: 2007Q4

REPORT INFORMATION
  Report Type: 
  Country: None (occurrence: None)
  Receive Date: 20071025
  Receipt Date: 20071025
  Transmission Date: 20080405
  Serious: Yes (Other)
  Sender: FDA-Public Use
  Company Number: None

PATIENT
  Age: 18 Year
  Sex: Male
  Weight: 81.8 kg

DRUGS (7)
  1. BENZOCAINE SPRAY 20% UNKNOWN [Suspect]
     Indication: LOCAL ANAESTHESIA
     Dosage: 1X OROPHARINGE
     Route: 049
     Dates: start: 20070514, end: 20070514
  2. IPRATROPIUM MDI [Concomitant]
  3. ALBUTEROL [Concomitant]
  4. MIDAZOLAM HCL [Concomitant]
  5. MORPHINE [Concomitant]
  6. PROPOFOL [Concomitant]
  7. VECURONIUM BROMIDE [Concomitant]

REACTIONS (2)
  - BLOOD METHAEMOGLOBIN PRESENT [None]
  - OXYGEN SATURATION DECREASED [None]
